FAERS Safety Report 8413562-4 (Version None)
Quarter: 2012Q2

REPORT INFORMATION
  Report Type: 
  Country: None (occurrence: None)
  Receive Date: 20120605
  Receipt Date: 20120601
  Transmission Date: 20120825
  Serious: Yes (Death)
  Sender: FDA-Public Use
  Company Number: CN-GLAXOSMITHKLINE-Z0014569A

PATIENT
  Sex: Male
  Weight: 64 kg

DRUGS (2)
  1. PAZOPANIB [Suspect]
     Indication: RENAL CELL CARCINOMA
     Dosage: 800MG PER DAY
     Route: 048
     Dates: start: 20101224
  2. GLUTAMINE [Concomitant]
     Indication: LUNG INFECTION
     Dosage: .67G THREE TIMES PER DAY
     Route: 048
     Dates: start: 20120222, end: 20120326

REACTIONS (1)
  - LUNG INFECTION [None]
